FAERS Safety Report 6096931-X (Version None)
Quarter: 2009Q1

REPORT INFORMATION
  Report Type: 
  Country: None (occurrence: None)
  Receive Date: 20090227
  Receipt Date: 20090218
  Transmission Date: 20090719
  Serious: Yes (Other)
  Sender: FDA-Public Use
  Company Number: US-JNJFOC-20060701772

PATIENT
  Sex: Male

DRUGS (4)
  1. RISPERDAL [Suspect]
     Indication: ATTENTION DEFICIT/HYPERACTIVITY DISORDER
     Route: 048
  2. RISPERDAL [Suspect]
     Indication: BIPOLAR DISORDER
     Route: 048
  3. SEROQUEL [Concomitant]
     Indication: DRUG USE FOR UNKNOWN INDICATION
     Route: 048
  4. CONCERTA [Concomitant]
     Indication: DISTURBANCE IN ATTENTION
     Route: 048

REACTIONS (9)
  - AGGRESSION [None]
  - BILATERAL BREAST BUDS [None]
  - BLOOD PROLACTIN INCREASED [None]
  - MIGRAINE [None]
  - NIPPLE DISORDER [None]
  - NIPPLE PAIN [None]
  - OBSESSIVE-COMPULSIVE DISORDER [None]
  - OFF LABEL USE [None]
  - PROTEIN URINE PRESENT [None]
